FAERS Safety Report 17846534 (Version 1)
Quarter: 2020Q2

REPORT INFORMATION
  Report Type: Spontaneous
  Country: IE (occurrence: IE)
  Receive Date: 20200601
  Receipt Date: 20200601
  Transmission Date: 20200714
  Serious: Yes (Life-Threatening, Hospitalization, Disabling, Other)
  Sender: FDA-Public Use
  Company Number: IE-TEVA-2020-IE-1241861

PATIENT
  Age: 43 Year
  Sex: Male
  Weight: 87 kg

DRUGS (2)
  1. QUININE SULPHATE TABLETS [Suspect]
     Active Substance: QUININE SULFATE
     Dosage: 300 MILLIGRAM DAILY;
     Dates: start: 20140924, end: 201910
  2. QUININE SULPHATE TABLETS [Suspect]
     Active Substance: QUININE SULFATE
     Indication: NEUROPATHY PERIPHERAL
     Dates: start: 202004

REACTIONS (5)
  - Blindness transient [Not Recovered/Not Resolved]
  - Eye haemorrhage [Not Recovered/Not Resolved]
  - Cerebrovascular accident [Not Recovered/Not Resolved]
  - Retinopathy [Not Recovered/Not Resolved]
  - Headache [Not Recovered/Not Resolved]

NARRATIVE: CASE EVENT DATE: 2017
